FAERS Safety Report 21630760 (Version 1)
Quarter: 2022Q4

REPORT INFORMATION
  Report Type: Spontaneous
  Country: CA (occurrence: CA)
  Receive Date: 20221123
  Receipt Date: 20221123
  Transmission Date: 20230113
  Serious: Yes (Other)
  Sender: FDA-Public Use
  Company Number: CA-NOVOPROD-980674

PATIENT
  Age: 62 Year
  Sex: Female

DRUGS (2)
  1. OZEMPIC [Suspect]
     Active Substance: SEMAGLUTIDE
     Indication: Diabetes mellitus
     Dosage: 1 MG, QW
  2. OZEMPIC [Suspect]
     Active Substance: SEMAGLUTIDE
     Indication: Weight decreased
     Dosage: 2 MG, QW(APPROX 3 WEEKS AGO. LAST DOSE TAKEN LAST FRIDAY )

REACTIONS (11)
  - Suicidal ideation [Unknown]
  - Headache [Unknown]
  - Weight increased [Unknown]
  - Pain [Unknown]
  - Abdominal distension [Recovering/Resolving]
  - Retching [Unknown]
  - Vomiting [Unknown]
  - Decreased appetite [Unknown]
  - Abdominal pain upper [Unknown]
  - Dysgeusia [Unknown]
  - Off label use [Unknown]
